FAERS Safety Report 26174086 (Version 1)
Quarter: 2025Q4

REPORT INFORMATION
  Report Type: Spontaneous
  Country: JP (occurrence: JP)
  Receive Date: 20251218
  Receipt Date: 20251218
  Transmission Date: 20260118
  Serious: Yes (Disabling, Other)
  Sender: PFIZER
  Company Number: JP-PFIZER INC-PV202500146960

PATIENT
  Age: 45 Year
  Sex: Male

DRUGS (1)
  1. SIROLIMUS [Suspect]
     Active Substance: SIROLIMUS
     Indication: Haemangioma
     Dosage: 2 MG, 1X/DAY
     Route: 048
     Dates: start: 20240415, end: 20251110

REACTIONS (3)
  - Proteinuria [Unknown]
  - Glomerular filtration rate decreased [Unknown]
  - Hypercholesterolaemia [Unknown]
